FAERS Safety Report 13773082 (Version 4)
Quarter: 2018Q1

REPORT INFORMATION
  Report Type: Spontaneous
  Country: US (occurrence: US)
  Receive Date: 20170720
  Receipt Date: 20180105
  Transmission Date: 20180508
  Serious: Yes (Other)
  Sender: FDA-Public Use
  Company Number: US-PFIZER INC-2017310531

PATIENT
  Age: 73 Year
  Sex: Female
  Weight: 102.4 kg

DRUGS (3)
  1. IBRANCE [Suspect]
     Active Substance: PALBOCICLIB
     Indication: BREAST CANCER METASTATIC
     Dosage: 100 MG, CYCLIC (DAYS1-21 Q28 DAYS)
     Route: 048
     Dates: start: 20170630
  2. IBRANCE [Suspect]
     Active Substance: PALBOCICLIB
     Dosage: 100 MG, CYCLIC (DAYS1-21 Q 28 DAYS)
     Route: 048
     Dates: start: 20170630
  3. IBRANCE [Suspect]
     Active Substance: PALBOCICLIB
     Dosage: 100 MG, CYCLIC (ONCE DAILYX21DAYS,7DAYS OFF)
     Route: 048
     Dates: start: 20170624, end: 20180103

REACTIONS (13)
  - Pulmonary oedema [Unknown]
  - Productive cough [Unknown]
  - Sputum discoloured [Unknown]
  - Tumour marker increased [Unknown]
  - Nasal congestion [Unknown]
  - Procedural pain [Unknown]
  - Fatigue [Unknown]
  - Constipation [Unknown]
  - Dyspnoea [Unknown]
  - Epistaxis [Unknown]
  - Flatulence [Unknown]
  - Cough [Unknown]
  - Sinus congestion [Unknown]
